FAERS Safety Report 25240009 (Version 1)
Quarter: 2025Q2

REPORT INFORMATION
  Report Type: Other
  Country: US (occurrence: US)
  Receive Date: 20250425
  Receipt Date: 20250425
  Transmission Date: 20250717
  Serious: Yes (Death, Congenital Anomaly, Other)
  Sender: EMD SERONO INC
  Company Number: US-Merck Healthcare KGaA-2025019698

PATIENT
  Sex: Female
  Weight: 5 kg

DRUGS (2)
  1. METFORMIN [Suspect]
     Active Substance: METFORMIN HYDROCHLORIDE
     Indication: Gestational diabetes
  2. SYNTHROID [Suspect]
     Active Substance: LEVOTHYROXINE SODIUM
     Indication: Product used for unknown indication

REACTIONS (11)
  - Death [Fatal]
  - Hypertrophic cardiomyopathy [Unknown]
  - Cardiac septal hypertrophy [Unknown]
  - Large for dates baby [Unknown]
  - Macrosomia [Unknown]
  - Pulmonary hypertension [Unknown]
  - Cardiac failure congestive [Unknown]
  - Pancreatic islets hyperplasia [Unknown]
  - Eosinophilia [Unknown]
  - Charcot-Leyden crystals [Unknown]
  - Foetal exposure during pregnancy [Recovered/Resolved]
